FAERS Safety Report 25641271 (Version 1)
Quarter: 2025Q3

REPORT INFORMATION
  Report Type: Spontaneous
  Country: US (occurrence: US)
  Receive Date: 20250804
  Receipt Date: 20250804
  Transmission Date: 20251020
  Serious: No
  Sender: SANOFI AVENTIS
  Company Number: US-SA-2025SA226978

PATIENT
  Sex: Male

DRUGS (9)
  1. DUPIXENT [Suspect]
     Active Substance: DUPILUMAB
     Indication: Dermatitis atopic
     Dosage: 300 MG, QOW
     Route: 058
     Dates: start: 2025
  2. BUPRENORPHINE [Concomitant]
     Active Substance: BUPRENORPHINE
  3. CELECOXIB [Concomitant]
     Active Substance: CELECOXIB
  4. HYDROCODONE [Concomitant]
     Active Substance: HYDROCODONE
  5. LOVASTATIN [Concomitant]
     Active Substance: LOVASTATIN
  6. METHOCARBAMOL [Concomitant]
     Active Substance: METHOCARBAMOL
  7. PANTOPRAZOLE [Concomitant]
     Active Substance: PANTOPRAZOLE
  8. TRAMADOL HCL [Concomitant]
     Active Substance: TRAMADOL HYDROCHLORIDE
  9. ZOLPIDEM TARTRATE [Concomitant]
     Active Substance: ZOLPIDEM TARTRATE

REACTIONS (1)
  - Pruritus [Not Recovered/Not Resolved]

NARRATIVE: CASE EVENT DATE: 20250101
